FAERS Safety Report 24972951 (Version 6)
Quarter: 2025Q2

REPORT INFORMATION
  Report Type: Spontaneous
  Country: CA (occurrence: CA)
  Receive Date: 20250215
  Receipt Date: 20250515
  Transmission Date: 20250716
  Serious: Yes (Other)
  Sender: ASTELLAS
  Company Number: CA-PFIZER INC-PV202400145071

PATIENT
  Age: 77 Year
  Sex: Female
  Weight: 41 kg

DRUGS (16)
  1. PADCEV [Suspect]
     Active Substance: ENFORTUMAB VEDOTIN-EJFV
     Indication: Transitional cell carcinoma
     Route: 042
     Dates: start: 20241029
  2. PADCEV [Suspect]
     Active Substance: ENFORTUMAB VEDOTIN-EJFV
     Dosage: POWDER FOR SOLUTION FOR INFUSION?52 MG, EVERY 3 WEEKS (EVERY 21 DAYS)
     Route: 042
     Dates: start: 20241105
  3. PADCEV [Suspect]
     Active Substance: ENFORTUMAB VEDOTIN-EJFV
     Dosage: POWDER FOR SOLUTION FOR INFUSION?52.5 MG, EVERY 3 WEEKS (EVERY 21 DAYS)
     Route: 042
     Dates: start: 20241120
  4. PADCEV [Suspect]
     Active Substance: ENFORTUMAB VEDOTIN-EJFV
     Dosage: POWDER FOR SOLUTION FOR INFUSION?52.5 MG, EVERY 3 WEEKS (EVERY 21 DAYS)
     Route: 042
     Dates: start: 20241127
  5. PADCEV [Suspect]
     Active Substance: ENFORTUMAB VEDOTIN-EJFV
     Route: 042
     Dates: start: 20241211
  6. PADCEV [Suspect]
     Active Substance: ENFORTUMAB VEDOTIN-EJFV
     Route: 042
     Dates: start: 20241218
  7. PADCEV [Suspect]
     Active Substance: ENFORTUMAB VEDOTIN-EJFV
     Route: 042
     Dates: start: 20250108
  8. PADCEV [Suspect]
     Active Substance: ENFORTUMAB VEDOTIN-EJFV
     Dosage: POWDER FOR SOLUTION FOR INFUSION?52.5 MG (1.25MG/KG), ON DAY1 AND 8 Q3 WEEKS
     Route: 042
     Dates: start: 20250115
  9. PADCEV [Suspect]
     Active Substance: ENFORTUMAB VEDOTIN-EJFV
     Dosage: POWDER FOR SOLUTION FOR INFUSION?52.5 MG (1.25MG/KG), ON DAY1 AND 8 Q3 WEEKS
     Route: 042
     Dates: start: 20250205
  10. PADCEV [Suspect]
     Active Substance: ENFORTUMAB VEDOTIN-EJFV
     Dosage: POWDER FOR SOLUTION FOR INFUSION?39 MG (1MG/KG), ON DAY1 AND 8 Q3 WEEKS
     Route: 042
     Dates: start: 20250219
  11. PADCEV [Suspect]
     Active Substance: ENFORTUMAB VEDOTIN-EJFV
     Route: 042
     Dates: start: 20250226
  12. CEPHALEX [Concomitant]
     Indication: Inflammation
     Route: 048
     Dates: start: 20241115
  13. KEYTRUDA [Concomitant]
     Active Substance: PEMBROLIZUMAB
     Indication: Product used for unknown indication
     Route: 065
  14. TYLENOL [Concomitant]
     Active Substance: ACETAMINOPHEN
     Indication: Product used for unknown indication
     Route: 065
  15. RAMIPRIL [Concomitant]
     Active Substance: RAMIPRIL
     Indication: Product used for unknown indication
     Route: 065
  16. ROSUVASTATIN [Concomitant]
     Active Substance: ROSUVASTATIN
     Indication: Product used for unknown indication
     Route: 065

REACTIONS (20)
  - Renal disorder [Unknown]
  - Weight decreased [Not Recovered/Not Resolved]
  - Constipation [Not Recovered/Not Resolved]
  - Blood pressure diastolic increased [Recovered/Resolved]
  - Blood pressure increased [Recovered/Resolved]
  - Oxygen saturation decreased [Not Recovered/Not Resolved]
  - Heart rate increased [Unknown]
  - Hypertension [Recovered/Resolved]
  - Abdominal pain [Not Recovered/Not Resolved]
  - Pain [Unknown]
  - Fatigue [Unknown]
  - Blood pressure decreased [Unknown]
  - Nasopharyngitis [Unknown]
  - Cough [Unknown]
  - Dry mouth [Unknown]
  - Back pain [Recovered/Resolved]
  - Decreased appetite [Unknown]
  - Dizziness postural [Unknown]
  - Inappropriate schedule of product administration [Unknown]
  - Off label use [Unknown]

NARRATIVE: CASE EVENT DATE: 20240101
